FAERS Safety Report 12854169 (Version 1)
Quarter: 2016Q4

REPORT INFORMATION
  Report Type: Spontaneous
  Country: US (occurrence: US)
  Receive Date: 20161017
  Receipt Date: 20161017
  Transmission Date: 20170207
  Serious: Yes (Other)
  Sender: FDA-Public Use
  Company Number: US-BTG INTERNATIONAL LTD-BTG00765

PATIENT

DRUGS (2)
  1. CROFAB [Suspect]
     Active Substance: CROTALIDAE POLYVALENT IMMUNE FAB (OVINE)
     Indication: SNAKE BITE
     Dosage: UNK
     Dates: start: 20160626
  2. CROFAB [Suspect]
     Active Substance: CROTALIDAE POLYVALENT IMMUNE FAB (OVINE)
     Dosage: 6 G, UNK, UPWARDS OF 10 VIALS
     Dates: start: 20160628

REACTIONS (2)
  - Platelet count decreased [Recovered/Resolved]
  - Ecchymosis [Unknown]

NARRATIVE: CASE EVENT DATE: 201606
